FAERS Safety Report 22727827 (Version 2)
Quarter: 2025Q4

REPORT INFORMATION
  Report Type: Report from Study
  Country: CO (occurrence: CO)
  Receive Date: 20230720
  Receipt Date: 20251228
  Transmission Date: 20260117
  Serious: Yes (Hospitalization)
  Sender: ABBVIE
  Company Number: CO-ABBVIE-5333923

PATIENT
  Age: 21 Year
  Sex: Male
  Weight: 85 kg

DRUGS (10)
  1. SKYRIZI [Suspect]
     Active Substance: RISANKIZUMAB-RZAA
     Indication: Psoriasis
     Dosage: FORM STRENGTH : 150 MILLIGRAM
     Route: 058
     Dates: start: 20230104
  2. PAROXETINE [Concomitant]
     Active Substance: PAROXETINE
     Indication: Anxiety
     Dosage: 37.5 MILLIGRAM
     Route: 048
     Dates: start: 202305
  3. PAROXETINE [Concomitant]
     Active Substance: PAROXETINE
     Indication: Anxiety
     Dosage: 37.5 MILLIGRAM
     Route: 048
     Dates: start: 202305
  4. ALPRAZOLAM [Concomitant]
     Active Substance: ALPRAZOLAM
     Indication: Sleep disorder
     Dosage: 1 TABLET
     Route: 048
     Dates: start: 202307
  5. ALPRAZOLAM [Concomitant]
     Active Substance: ALPRAZOLAM
     Indication: Sleep disorder
     Dosage: 1 TABLET AT NIGHT
     Route: 048
     Dates: start: 202307
  6. HALOPERIDOL [Suspect]
     Active Substance: HALOPERIDOL
     Indication: Anxiety
     Dosage: NOT REPORTED
     Dates: start: 20230709, end: 20230709
  7. HALOPERIDOL [Suspect]
     Active Substance: HALOPERIDOL
     Indication: Anxiety
     Dosage: NOT REPORTED
     Route: 065
     Dates: start: 20230709, end: 20230709
  8. ESCITALOPRAM OXALATE [Concomitant]
     Active Substance: ESCITALOPRAM OXALATE
     Indication: Anxiety
     Dosage: BEFORE SKYRIZI
     Route: 048
  9. PREGABALIN [Suspect]
     Active Substance: PREGABALIN
     Indication: Anxiety
     Dosage: IT TOOK LESS THAN 1 MONTH?START DATE: AFTER SKYRIZI
     Route: 048
     Dates: end: 20251220
  10. PREGABALIN [Suspect]
     Active Substance: PREGABALIN
     Indication: Anxiety
     Dosage: DOSE USED TO TAKE 2CM
     Route: 048
     Dates: start: 202509, end: 2025

REACTIONS (12)
  - Hypertension [Recovered/Resolved]
  - Anxiety [Recovering/Resolving]
  - Stress [Not Recovered/Not Resolved]
  - Muscle contracture [Recovered/Resolved]
  - Gaze palsy [Recovered/Resolved]
  - Vision blurred [Recovered/Resolved]
  - Neck pain [Recovered/Resolved]
  - Somnolence [Not Recovered/Not Resolved]
  - Dyskinesia [Recovered/Resolved]
  - Musculoskeletal stiffness [Recovered/Resolved]
  - Photophobia [Recovered/Resolved]
  - Crying [Recovered/Resolved]

NARRATIVE: CASE EVENT DATE: 20230709
